FAERS Safety Report 18192786 (Version 2)
Quarter: 2020Q4

REPORT INFORMATION
  Report Type: Report from Study
  Country: US (occurrence: US)
  Receive Date: 20200825
  Receipt Date: 20201008
  Transmission Date: 20210113
  Serious: Yes (Hospitalization)
  Sender: FDA-Public Use
  Company Number: US-VERTEX PHARMACEUTICALS-2020-011525

PATIENT
  Age: 56 Year
  Sex: Female

DRUGS (42)
  1. LORATADINE. [Concomitant]
     Active Substance: LORATADINE
  2. URSODIOL. [Concomitant]
     Active Substance: URSODIOL
  3. ALPRAZOLAM. [Concomitant]
     Active Substance: ALPRAZOLAM
  4. CYANOCOBALAMIN. [Concomitant]
     Active Substance: CYANOCOBALAMIN
  5. LEVALBUTEROL [LEVOSALBUTAMOL] [Concomitant]
     Active Substance: LEVALBUTEROL
  6. KALYDECO [Suspect]
     Active Substance: IVACAFTOR
     Indication: CYSTIC FIBROSIS
     Dosage: 150 MG, BID
     Route: 048
     Dates: start: 20150110
  7. N-ACETYL-L-CYSTEINE [Concomitant]
     Active Substance: ACETYLCYSTEINE
  8. BETHKIS [Concomitant]
     Active Substance: TOBRAMYCIN
  9. CAYSTON [Concomitant]
     Active Substance: AZTREONAM
  10. MUPIROCIN. [Concomitant]
     Active Substance: MUPIROCIN
  11. SERTRALINE [Concomitant]
     Active Substance: SERTRALINE HYDROCHLORIDE
  12. CALCIUM CITRATE + D3 [Concomitant]
  13. MUCINEX [Concomitant]
     Active Substance: GUAIFENESIN
  14. TOPAMAX [Concomitant]
     Active Substance: TOPIRAMATE
  15. MIRALAX [Concomitant]
     Active Substance: POLYETHYLENE GLYCOL 3350
  16. ADVAIR HFA [Concomitant]
     Active Substance: FLUTICASONE PROPIONATE\SALMETEROL XINAFOATE
     Dosage: 250/50 DISKUS
  17. OLOPATADINE. [Concomitant]
     Active Substance: OLOPATADINE
  18. GUAIFENESIN. [Concomitant]
     Active Substance: GUAIFENESIN
  19. SALINE [SODIUM CHLORIDE] [Concomitant]
     Active Substance: SODIUM CHLORIDE
  20. VITAMIN D3 [Concomitant]
     Active Substance: CHOLECALCIFEROL
  21. MELATONIN [Concomitant]
     Active Substance: MELATONIN
  22. NYSTATIN. [Concomitant]
     Active Substance: NYSTATIN
  23. TOPIRAMATE. [Concomitant]
     Active Substance: TOPIRAMATE
  24. CALCIUM CITRATE [Concomitant]
     Active Substance: CALCIUM CITRATE
  25. PANCREAZE [Concomitant]
     Active Substance: PANCRELIPASE AMYLASE\PANCRELIPASE LIPASE\PANCRELIPASE PROTEASE
  26. AZITHROMYCIN ANHYDROUS. [Concomitant]
     Active Substance: AZITHROMYCIN ANHYDROUS
  27. PULMOZYME [Concomitant]
     Active Substance: DORNASE ALFA
  28. TRAZODONE [Concomitant]
     Active Substance: TRAZODONE HYDROCHLORIDE
  29. FAMOTIDINE. [Concomitant]
     Active Substance: FAMOTIDINE
  30. ALTERRA [Concomitant]
  31. PROMETHAZINE [Concomitant]
     Active Substance: PROMETHAZINE HYDROCHLORIDE
  32. LEVOFLOXACIN. [Concomitant]
     Active Substance: LEVOFLOXACIN
  33. SODIUM CHLORIDE. [Concomitant]
     Active Substance: SODIUM CHLORIDE
  34. TRAMADOL HCL [Concomitant]
     Active Substance: TRAMADOL HYDROCHLORIDE
  35. METAXALONE. [Concomitant]
     Active Substance: METAXALONE
  36. COLISTIMETHATE [COLISTIMETHATE SODIUM] [Concomitant]
     Active Substance: COLISTIMETHATE SODIUM
  37. FLUOROMETHOLON [Concomitant]
     Active Substance: FLUOROMETHOLONE
  38. FLONASE [Concomitant]
     Active Substance: FLUTICASONE PROPIONATE
  39. ZOLOFT [Concomitant]
     Active Substance: SERTRALINE HYDROCHLORIDE
  40. PANTOPRAZOLE [Concomitant]
     Active Substance: PANTOPRAZOLE
  41. CRESEMBA [Concomitant]
     Active Substance: ISAVUCONAZONIUM SULFATE
     Dosage: UNK, FOR 8-12 WEEKS
  42. CLONAZEPAM. [Concomitant]
     Active Substance: CLONAZEPAM

REACTIONS (2)
  - Pneumonia bacterial [Not Recovered/Not Resolved]
  - Cystic fibrosis [Unknown]

NARRATIVE: CASE EVENT DATE: 20200519
